FAERS Safety Report 24740293 (Version 1)
Quarter: 2024Q4

REPORT INFORMATION
  Report Type: Report from Study
  Country: US (occurrence: US)
  Receive Date: 20241216
  Receipt Date: 20241216
  Transmission Date: 20250114
  Serious: Yes (Other)
  Sender: AMNEAL
  Company Number: US-AMNEAL PHARMACEUTICALS-2024-AMRX-04446

PATIENT
  Age: 59 Year
  Sex: Male

DRUGS (23)
  1. CARBIDOPA\LEVODOPA [Suspect]
     Active Substance: CARBIDOPA\LEVODOPA
     Indication: Parkinson^s disease
     Dosage: (145/36.25 MG) 1 CAPSULES, 3 /DAY
     Route: 048
  2. CARBIDOPA\LEVODOPA [Suspect]
     Active Substance: CARBIDOPA\LEVODOPA
     Dosage: (145/36.25 MG) 1 CAPSULES, 6 /DAY
     Route: 048
     Dates: start: 20230418
  3. CARBIDOPA\LEVODOPA [Suspect]
     Active Substance: CARBIDOPA\LEVODOPA
     Dosage: (195 MG) 1 CAPSULES, 3 HOURS FOR 6 DOSES PER DAY
     Route: 048
     Dates: start: 20241003
  4. PRAMIPEXOLE [Concomitant]
     Active Substance: PRAMIPEXOLE\PRAMIPEXOLE DIHYDROCHLORIDE
     Indication: Product used for unknown indication
     Dosage: UNK, DAILY
     Route: 065
  5. PRAMIPEXOLE [Concomitant]
     Active Substance: PRAMIPEXOLE\PRAMIPEXOLE DIHYDROCHLORIDE
     Dosage: TAKE 1 TABLET BY MOUTH AT BEDTIME
     Route: 065
     Dates: start: 20241003
  6. ACETAMINOPHEN [Concomitant]
     Active Substance: ACETAMINOPHEN
     Indication: Product used for unknown indication
     Dosage: TAKE 500 MG BY MOUTH EVERY 6 HOURS AS NEEDED FOR PAIN MAX OF 3000 MG ACETAMINOPHEN/24HRS
     Route: 048
  7. ACETAMINOPHEN AND CODEINE [Concomitant]
     Active Substance: ACETAMINOPHEN\CODEINE PHOSPHATE
     Indication: Product used for unknown indication
     Dosage: (300-30 MG) TAKE ONE TABLET BY MOUTH EVERY SIX HOURS AS NEEDED FOR 30 DAYS
     Route: 048
     Dates: start: 20220628
  8. ALBUTEROL [Concomitant]
     Active Substance: ALBUTEROL
     Indication: Product used for unknown indication
     Dosage: (90 MCG/ACTUATION AEROSOL INHALER) INHALE 2 PUFFS IN LUNGS EVERY 6 HOURS AS NEEDED FOR SHORTNESS OF
  9. BENZONATATE [Concomitant]
     Active Substance: BENZONATATE
     Indication: Product used for unknown indication
     Dosage: TAKE 1 CAPSULE (100 MG TOTAL) BY MOUTH THREE TIMES DAILY AS NEEDED FOR COUGH DO NOT OPEN OR CHEW CAP
     Route: 048
     Dates: start: 20210821
  10. SINEMET [Concomitant]
     Active Substance: CARBIDOPA\LEVODOPA
     Indication: Product used for unknown indication
     Dosage: (25-100 MG) TAKE 2 TABLETS BY MOUTH EVERY 3 HOURS EVERY 3 HOURS UP TO SIX TIMES A DAY - ORAL
     Route: 048
     Dates: start: 20241003, end: 20241006
  11. BETAMETHASONE CLOTRIMAZOLE [Concomitant]
     Active Substance: BETAMETHASONE DIPROPIONATE\CLOTRIMAZOLE
     Indication: Product used for unknown indication
     Dosage: TO AFFECTED AREA
     Route: 061
  12. DICLOFENAC SODIUM [Concomitant]
     Active Substance: DICLOFENAC SODIUM
     Indication: Product used for unknown indication
     Dosage: 1 % TOPICAL GEL
     Route: 061
     Dates: start: 20211126
  13. DIPHENHYDRAMINE [Concomitant]
     Active Substance: DIPHENHYDRAMINE
     Indication: Hypersensitivity
     Dosage: TAKE 50 MG BY MOUTH EVERY 6 HOURS AS NEEDED
     Route: 048
  14. ESCITALOPRAM OXALATE [Concomitant]
     Active Substance: ESCITALOPRAM OXALATE
     Indication: Product used for unknown indication
     Dosage: TAKE ONE TABLET (20 MG TOTAL) BY MOUTH DAILY
     Route: 048
     Dates: start: 20241003
  15. FLUOCINONIDE [Concomitant]
     Active Substance: FLUOCINONIDE
     Indication: Product used for unknown indication
     Dosage: APPLY TO AFFECTED AREA TWICE DAILY APPLY THINLY
     Route: 061
  16. HYDROCODONE BITARTRATE AND ACETAMINOPHEN [Concomitant]
     Active Substance: ACETAMINOPHEN\HYDROCODONE BITARTRATE
     Indication: Product used for unknown indication
     Dosage: 10- 325 MG ORAL TABLET
     Route: 048
  17. IBUPROFEN [Concomitant]
     Active Substance: IBUPROFEN
     Indication: Pyrexia
     Dosage: TAKE 400 MG BY MOUTH THREE TIMES DAILY AS NEEDED
     Route: 048
     Dates: start: 20000101
  18. IBUPROFEN [Concomitant]
     Active Substance: IBUPROFEN
     Indication: Pain
  19. OXYCODONE [Concomitant]
     Active Substance: OXYCODONE
     Indication: Product used for unknown indication
     Dosage: 5 MILLIGRAM, EVERY 6HR
     Route: 048
  20. TADALAFIL [Concomitant]
     Active Substance: TADALAFIL
     Indication: Product used for unknown indication
     Dosage: 20 MILLIGRAM
     Route: 048
     Dates: start: 20211123
  21. TAMSULOSIN [Concomitant]
     Active Substance: TAMSULOSIN
     Indication: Product used for unknown indication
     Dosage: 0.4 MG 1 CAPSULE
     Route: 048
  22. TEMAZEPAM [Concomitant]
     Active Substance: TEMAZEPAM
     Indication: Product used for unknown indication
     Dosage: 15 MILLIGRAM AT BEDTIME AS NEEDED
     Route: 048
     Dates: start: 20230717
  23. TRAMADOL [Concomitant]
     Active Substance: TRAMADOL
     Indication: Product used for unknown indication
     Dosage: 50 MILLIGRAM, EVERY 6HR
     Route: 048
     Dates: start: 20230407

REACTIONS (12)
  - Choking [Unknown]
  - Dystonia [Unknown]
  - Fall [Unknown]
  - Dysphagia [Unknown]
  - Gait disturbance [Unknown]
  - Speech disorder [Unknown]
  - Fatigue [Unknown]
  - Dyskinesia [Recovered/Resolved]
  - Somnolence [Unknown]
  - Therapeutic product effect decreased [Unknown]
  - Drug ineffective [Unknown]
  - Product use issue [Unknown]

NARRATIVE: CASE EVENT DATE: 20240607
